FAERS Safety Report 16947630 (Version 1)
Quarter: 2019Q4

REPORT INFORMATION
  Report Type: Spontaneous
  Country: CA (occurrence: CA)
  Receive Date: 20191022
  Receipt Date: 20191022
  Transmission Date: 20200122
  Serious: Yes (Other)
  Sender: FDA-Public Use
  Company Number: CA-TEVA-2019-CA-1124638

PATIENT
  Age: 15 Year
  Sex: Female
  Weight: 50 kg

DRUGS (14)
  1. VINCRISTINE SULFATE. [Suspect]
     Active Substance: VINCRISTINE SULFATE
     Indication: HODGKIN^S DISEASE
     Route: 042
  2. CYCLOPHOSPHAMIDE. [Concomitant]
     Active Substance: CYCLOPHOSPHAMIDE
  3. BUSULFAN. [Concomitant]
     Active Substance: BUSULFAN
  4. CARBOPLATIN. [Concomitant]
     Active Substance: CARBOPLATIN
  5. DOXORUBICIN LIPOSOMAL [Concomitant]
     Active Substance: DOXORUBICIN
  6. DEXAMETHASONE. [Concomitant]
     Active Substance: DEXAMETHASONE
  7. GEMCITABINE. [Concomitant]
     Active Substance: GEMCITABINE
  8. ADCETRIS [Suspect]
     Active Substance: BRENTUXIMAB VEDOTIN
     Indication: HODGKIN^S DISEASE
     Route: 042
  9. ETOPOSIDE. [Concomitant]
     Active Substance: ETOPOSIDE
  10. IFOSFAMIDE FOR INJECTION, USP [Concomitant]
     Active Substance: IFOSFAMIDE
  11. PREDNISONE. [Concomitant]
     Active Substance: PREDNISONE
  12. VINORELBINE TARTRATE FOR INJECTION [Concomitant]
     Active Substance: VINORELBINE TARTRATE
  13. BLEOMYCIN SULPHATE FOR INJECTION USP [Concomitant]
     Active Substance: BLEOMYCIN SULFATE
  14. MELPHALAN. [Concomitant]
     Active Substance: MELPHALAN

REACTIONS (2)
  - Peripheral sensorimotor neuropathy [Recovering/Resolving]
  - Arthralgia [Recovering/Resolving]
